FAERS Safety Report 17868248 (Version 1)
Quarter: 2020Q2

REPORT INFORMATION
  Report Type: Spontaneous
  Country: JO (occurrence: JO)
  Receive Date: 20200605
  Receipt Date: 20200605
  Transmission Date: 20200714
  Serious: Yes (Death)
  Sender: FDA-Public Use
  Company Number: JO-ROCHE-2616035

PATIENT
  Sex: Male

DRUGS (1)
  1. ACTILYSE [Suspect]
     Active Substance: ALTEPLASE
     Indication: THROMBOSIS
     Route: 065

REACTIONS (1)
  - Death [Fatal]
